FAERS Safety Report 8917311 (Version 1)
Quarter: 2012Q4

REPORT INFORMATION
  Report Type: 
  Country: US (occurrence: US)
  Receive Date: 20121120
  Receipt Date: 20121120
  Transmission Date: 20130627
  Serious: No
  Sender: FDA-Public Use
  Company Number: US-009507513-1211USA002333

PATIENT
  Age: 1 Month

DRUGS (1)
  1. BCG VACCINE USP [Suspect]
     Indication: PROPHYLAXIS

REACTIONS (2)
  - Overdose [Unknown]
  - No adverse event [Unknown]
